FAERS Safety Report 9248831 (Version 1)
Quarter: 2013Q2

REPORT INFORMATION
  Report Type: Spontaneous
  Country: US (occurrence: None)
  Receive Date: 20130419
  Receipt Date: 20130419
  Transmission Date: 20140414
  Serious: Yes (Life-Threatening, Hospitalization, Disabling, Other)
  Sender: FDA-Public Use
  Company Number: None

PATIENT
  Age: 56 Year
  Sex: Female
  Weight: 69.4 kg

DRUGS (2)
  1. AZITHROMYCIN [Suspect]
     Indication: EAR INFECTION
     Dosage: FIURST ONCE DOSE
     Route: 048
     Dates: start: 20130319
  2. AZITHROMYCIN [Suspect]
     Indication: PULMONARY CONGESTION
     Dosage: FIURST ONCE DOSE
     Route: 048
     Dates: start: 20130319

REACTIONS (11)
  - Asthenia [None]
  - Neck pain [None]
  - Musculoskeletal pain [None]
  - Pain in jaw [None]
  - Vomiting [None]
  - Blood pressure immeasurable [None]
  - Renal failure [None]
  - Laboratory test abnormal [None]
  - Communication disorder [None]
  - Dyspnoea [None]
  - Dysstasia [None]
